FAERS Safety Report 5957511-7 (Version None)
Quarter: 2008Q4

REPORT INFORMATION
  Report Type: 
  Country: None (occurrence: None)
  Receive Date: 20081112
  Receipt Date: 20081103
  Transmission Date: 20090506
  Serious: Yes (Other)
  Sender: FDA-Public Use
  Company Number: CHPA2008US18930

PATIENT
  Age: 65 Year
  Sex: Female
  Weight: 72.6 kg

DRUGS (1)
  1. EXCEDRIN ES BACK + BODY (NCH) (ACETYLSALICYLIC ACID, ACETAMINOPHEN (PA [Suspect]
     Indication: PAIN
     Dosage: 2 DF, QD, ORAL
     Route: 048
     Dates: start: 20081102, end: 20081102

REACTIONS (1)
  - HALLUCINATION [None]
